FAERS Safety Report 9696139 (Version 2)
Quarter: 2014Q2

REPORT INFORMATION
  Report Type: Spontaneous
  Country: DK (occurrence: CN)
  Receive Date: 20131119
  Receipt Date: 20140523
  Transmission Date: 20141212
  Serious: Yes (Hospitalization)
  Sender: FDA-Public Use
  Company Number: CN-FRI-1000051458

PATIENT
  Age: 63 Year
  Sex: Female

DRUGS (8)
  1. LEXAPRO [Suspect]
     Indication: INSOMNIA
     Dosage: 5 MG
     Route: 048
     Dates: start: 201209
  2. LEXAPRO [Suspect]
     Indication: ANXIETY
     Dosage: 10 MG
     Route: 048
     Dates: end: 201307
  3. LEXAPRO [Suspect]
     Dosage: 10 MG
     Route: 048
     Dates: start: 201404
  4. ZOLOFT [Concomitant]
     Indication: HYPERTENSION
     Dosage: 1 DF
     Route: 048
  5. OMEPRAZOLE [Concomitant]
     Indication: GASTROOESOPHAGEAL REFLUX DISEASE
     Route: 048
  6. METOPROLOL [Concomitant]
     Indication: SUPRAVENTRICULAR EXTRASYSTOLES
     Route: 048
     Dates: end: 201307
  7. LUDINGXIN [Concomitant]
     Indication: HYPERTENSION
     Dosage: 1 DF
     Route: 048
  8. SHENZHONG [Concomitant]
     Indication: SUPRAVENTRICULAR EXTRASYSTOLES
     Route: 048

REACTIONS (7)
  - Asthenia [Not Recovered/Not Resolved]
  - Confusional state [Not Recovered/Not Resolved]
  - Decreased appetite [Recovered/Resolved]
  - Muscle tightness [Recovered/Resolved]
  - Gastrooesophageal reflux disease [Recovered/Resolved]
  - Parkinson^s disease [Not Recovered/Not Resolved]
  - Off label use [Recovered/Resolved]
